FAERS Safety Report 5372580-3 (Version None)
Quarter: 2007Q2

REPORT INFORMATION
  Report Type: 
  Country: None (occurrence: None)
  Receive Date: 20070627
  Receipt Date: 20070618
  Transmission Date: 20071010
  Serious: Yes (Hospitalization, Other)
  Sender: FDA-Public Use
  Company Number: US-PFIZER INC-2007050449

PATIENT
  Sex: Male
  Weight: 100 kg

DRUGS (4)
  1. CHANTIX [Suspect]
     Indication: SMOKING CESSATION THERAPY
     Dosage: TEXT:EVERY DAY
     Dates: start: 20070101, end: 20070101
  2. ALL OTHER THERAPEUTIC PRODUCTS [Suspect]
     Indication: NAUSEA
  3. PLAVIX [Concomitant]
     Indication: CARDIAC DISORDER
  4. ALL OTHER THERAPEUTIC PRODUCTS [Concomitant]
     Indication: DIABETES MELLITUS

REACTIONS (1)
  - GASTRIC DISORDER [None]
